FAERS Safety Report 21784670 (Version 14)
Quarter: 2025Q3

REPORT INFORMATION
  Report Type: Spontaneous
  Country: CA (occurrence: CA)
  Receive Date: 20221227
  Receipt Date: 20250930
  Transmission Date: 20251021
  Serious: Yes (Other)
  Sender: PFIZER
  Company Number: CA-PFIZER INC-202200989863

PATIENT
  Age: 54 Year
  Sex: Female
  Weight: 100 kg

DRUGS (16)
  1. RUXIENCE [Suspect]
     Active Substance: RITUXIMAB-PVVR
     Indication: Rheumatoid arthritis
     Route: 042
     Dates: start: 20220107, end: 20220107
  2. RUXIENCE [Suspect]
     Active Substance: RITUXIMAB-PVVR
     Route: 042
     Dates: start: 20220122, end: 20220122
  3. RUXIENCE [Suspect]
     Active Substance: RITUXIMAB-PVVR
     Route: 042
     Dates: start: 20220707
  4. RUXIENCE [Suspect]
     Active Substance: RITUXIMAB-PVVR
     Route: 042
     Dates: start: 20230222, end: 20230308
  5. RUXIENCE [Suspect]
     Active Substance: RITUXIMAB-PVVR
     Route: 042
     Dates: start: 20230830, end: 20230913
  6. RUXIENCE [Suspect]
     Active Substance: RITUXIMAB-PVVR
     Route: 042
     Dates: start: 20240306
  7. RUXIENCE [Suspect]
     Active Substance: RITUXIMAB-PVVR
     Route: 042
     Dates: start: 20240320
  8. RUXIENCE [Suspect]
     Active Substance: RITUXIMAB-PVVR
     Route: 042
     Dates: start: 20250106, end: 20250120
  9. RUXIENCE [Suspect]
     Active Substance: RITUXIMAB-PVVR
     Route: 042
     Dates: start: 20250627, end: 20250723
  10. AMLODIPINE [Concomitant]
     Active Substance: AMLODIPINE BESYLATE
  11. DULOXETINE [Concomitant]
     Active Substance: DULOXETINE
  12. HYDROMORPHONE [Concomitant]
     Active Substance: HYDROMORPHONE
  13. METHOTREXATE [Concomitant]
     Active Substance: METHOTREXATE
  14. PREGABALIN [Concomitant]
     Active Substance: PREGABALIN
  15. QUETIAPINE [Concomitant]
     Active Substance: QUETIAPINE
  16. CHOLECALCIFEROL [Concomitant]
     Active Substance: CHOLECALCIFEROL

REACTIONS (4)
  - Nephrolithiasis [Not Recovered/Not Resolved]
  - COVID-19 [Recovering/Resolving]
  - Dizziness [Recovering/Resolving]
  - Condition aggravated [Recovering/Resolving]

NARRATIVE: CASE EVENT DATE: 20220101
